FAERS Safety Report 16974772 (Version 1)
Quarter: 2019Q4

REPORT INFORMATION
  Report Type: Spontaneous
  Country: US (occurrence: US)
  Receive Date: 20190912
  Receipt Date: 20190912
  Transmission Date: 20200122
  Serious: Yes (Hospitalization)
  Sender: FDA-Public Use
  Company Number: None

PATIENT
  Age: 72 Year
  Sex: Female
  Weight: 83.01 kg

DRUGS (7)
  1. AMOXICILLION-CLAVULANATE [Concomitant]
  2. LEVAQUIN [Concomitant]
     Active Substance: LEVOFLOXACIN
  3. CIPROFLOXACIN. [Concomitant]
     Active Substance: CIPROFLOXACIN
  4. SULFAMETHOXAZOLE-TRIMETHOPRIM [Concomitant]
     Active Substance: SULFAMETHOXAZOLE\TRIMETHOPRIM
  5. RECLAST [Suspect]
     Active Substance: ZOLEDRONIC ACID
     Indication: OSTEOPOROSIS
     Dosage: ?          QUANTITY:5 MG MILLIGRAM(S);OTHER FREQUENCY:ONCE A YEAR DOSE;?
     Dates: start: 20190826, end: 20190826
  6. PERCOCET [Concomitant]
     Active Substance: ACETAMINOPHEN\OXYCODONE HYDROCHLORIDE
  7. NITROFURANTOIN MACROCRYSTALS [Concomitant]
     Active Substance: NITROFURANTOIN

REACTIONS (5)
  - Bone pain [None]
  - Hypophosphataemia [None]
  - Muscle spasms [None]
  - Tinnitus [None]
  - Dizziness [None]

NARRATIVE: CASE EVENT DATE: 20190827
